FAERS Safety Report 18877420 (Version 1)
Quarter: 2021Q1

REPORT INFORMATION
  Report Type: Spontaneous
  Country: GB (occurrence: GB)
  Receive Date: 20210211
  Receipt Date: 20210211
  Transmission Date: 20210420
  Serious: Yes (Hospitalization)
  Sender: FDA-Public Use
  Company Number: GB-ACCORD-216781

PATIENT
  Age: 74 Year
  Sex: Female

DRUGS (7)
  1. DEXAMETHASONE. [Concomitant]
     Active Substance: DEXAMETHASONE
  2. FOLINIC ACID [Concomitant]
     Active Substance: LEUCOVORIN
  3. FOSAPREPITANT [Concomitant]
     Active Substance: FOSAPREPITANT
  4. OXALIPLATIN. [Concomitant]
     Active Substance: OXALIPLATIN
  5. FLUOROURACIL. [Suspect]
     Active Substance: FLUOROURACIL
     Indication: GASTRIC CANCER
     Dosage: 1201.03MG/M2.
     Route: 042
     Dates: start: 20181121
  6. PALONOSETRON/PALONOSETRON HYDROCHLORIDE [Concomitant]
     Active Substance: PALONOSETRON HYDROCHLORIDE
  7. FLUOROURACIL. [Suspect]
     Active Substance: FLUOROURACIL
     Indication: GASTRIC CANCER
     Dosage: 201.03MG/M2
     Route: 042
     Dates: start: 20181121

REACTIONS (2)
  - Abdominal pain lower [Unknown]
  - Pain [Unknown]

NARRATIVE: CASE EVENT DATE: 20201213
